FAERS Safety Report 13951429 (Version 1)
Quarter: 2017Q3

REPORT INFORMATION
  Report Type: Spontaneous
  Country: US (occurrence: US)
  Receive Date: 20170908
  Receipt Date: 20170908
  Transmission Date: 20171128
  Serious: No
  Sender: FDA-Public Use
  Company Number: US-ROCHE-1192216

PATIENT
  Age: 64 Year
  Sex: Female

DRUGS (7)
  1. DEXAMETHASONE. [Concomitant]
     Active Substance: DEXAMETHASONE
  2. CLADRIBINE. [Concomitant]
     Active Substance: CLADRIBINE
  3. CYCLOPHOSPHAMIDE. [Concomitant]
     Active Substance: CYCLOPHOSPHAMIDE
  4. BORTEZOMIB [Concomitant]
     Active Substance: BORTEZOMIB
  5. LENALIDOMIDE [Concomitant]
     Active Substance: LENALIDOMIDE
  6. RITUXIMAB. [Suspect]
     Active Substance: RITUXIMAB
     Indication: MANTLE CELL LYMPHOMA
     Route: 065
  7. PENTOSTATIN. [Concomitant]
     Active Substance: PENTOSTATIN

REACTIONS (5)
  - Pain [Unknown]
  - Dizziness [Unknown]
  - Epistaxis [Unknown]
  - Headache [Unknown]
  - Fatigue [Unknown]
